FAERS Safety Report 6496381-8 (Version None)
Quarter: 2009Q4

REPORT INFORMATION
  Report Type: 
  Country: None (occurrence: None)
  Receive Date: 20091214
  Receipt Date: 20091117
  Transmission Date: 20100525
  Serious: Yes (Other)
  Sender: FDA-Public Use
  Company Number: PHHY2009FR50139

PATIENT
  Sex: Male

DRUGS (9)
  1. RASILEZ [Suspect]
     Dosage: 300 MG
     Dates: start: 20091001
  2. RAMIPRIL [Suspect]
     Dosage: 5 MG, BID
  3. LASILIX [Concomitant]
  4. EUPRESSYL [Concomitant]
  5. PREVISCAN [Concomitant]
  6. NOVONORM [Concomitant]
  7. AMLOR [Concomitant]
  8. PLAVIX [Concomitant]
  9. CRESTOR [Concomitant]

REACTIONS (4)
  - DYSPNOEA [None]
  - EYELID OEDEMA [None]
  - FACE OEDEMA [None]
  - ORTHOPNOEA [None]
